FAERS Safety Report 5710140-2 (Version None)
Quarter: 2008Q2

REPORT INFORMATION
  Report Type: 
  Country: None (occurrence: None)
  Receive Date: 20080418
  Receipt Date: 20071015
  Transmission Date: 20081010
  Serious: No
  Sender: FDA-Public Use
  Company Number: US-ASTRAZENECA-2007UW23830

PATIENT
  Age: 56 Year
  Sex: Female
  Weight: 117.9 kg

DRUGS (3)
  1. METOPROLOL SUCCINATE [Suspect]
     Route: 048
     Dates: start: 20060401
  2. METOPROLOL SUCCINATE [Suspect]
     Route: 048
     Dates: start: 20071004
  3. DIOVAN [Concomitant]

REACTIONS (2)
  - BLOOD PRESSURE INADEQUATELY CONTROLLED [None]
  - HYPERTENSION [None]
